FAERS Safety Report 8522109 (Version 2)
Quarter: 2012Q4

REPORT INFORMATION
  Report Type: Spontaneous
  Country: GB (occurrence: None)
  Receive Date: 20120409
  Receipt Date: 20120816
  Transmission Date: 20130627
  Serious: Yes (Other)
  Sender: FDA-Public Use
  Company Number: 2012AP000893

PATIENT
  Age: 67 Year
  Sex: Female

DRUGS (1)
  1. LATANOPROST [Suspect]
     Dosage: ; OPH;
     Route: 047
     Dates: start: 20050412, end: 20120103

REACTIONS (4)
  - Balance disorder [None]
  - Eye irritation [None]
  - Feeling abnormal [None]
  - Vertigo [None]
